FAERS Safety Report 7929965-8 (Version None)
Quarter: 2011Q4

REPORT INFORMATION
  Report Type: 
  Country: None (occurrence: None)
  Receive Date: 20111117
  Receipt Date: 20111109
  Transmission Date: 20120403
  Serious: Yes (Hospitalization)
  Sender: FDA-Public Use
  Company Number: DKLU1072168

PATIENT
  Age: 3 Year
  Sex: Male

DRUGS (3)
  1. SABRIL [Suspect]
     Indication: INFANTILE SPASMS
     Dosage: 250 MG MILLIGRAM(S), 2 IN 1 D, ORAL
     Route: 048
  2. TEGRETOL [Concomitant]
  3. TOPAMAX [Concomitant]

REACTIONS (4)
  - IRRITABILITY [None]
  - PSYCHOMOTOR HYPERACTIVITY [None]
  - ANGER [None]
  - ABASIA [None]
